FAERS Safety Report 13772207 (Version 3)
Quarter: 2017Q3

REPORT INFORMATION
  Report Type: Spontaneous
  Country: US (occurrence: US)
  Receive Date: 20170720
  Receipt Date: 20170823
  Transmission Date: 20171127
  Serious: Yes (Other)
  Sender: FDA-Public Use
  Company Number: US-LUNDBECK-DKLU2033392

PATIENT
  Sex: Female

DRUGS (2)
  1. NORTHERA [Suspect]
     Active Substance: DROXIDOPA
     Indication: PRODUCT USED FOR UNKNOWN INDICATION
     Dosage: SCHEDULE B
     Route: 048
     Dates: start: 201704
  2. NORTHERA [Suspect]
     Active Substance: DROXIDOPA
     Dosage: TITRATION COMPLETE
     Route: 065

REACTIONS (6)
  - Fall [Unknown]
  - Feeling jittery [Unknown]
  - Palpitations [Unknown]
  - Therapeutic response shortened [Unknown]
  - Arterial perforation [Unknown]
  - Headache [Unknown]
